FAERS Safety Report 23118149 (Version 1)
Quarter: 2023Q4

REPORT INFORMATION
  Report Type: Spontaneous
  Country: US (occurrence: US)
  Receive Date: 20231027
  Receipt Date: 20231027
  Transmission Date: 20240110
  Serious: No
  Sender: FDA-Public Use
  Company Number: US-BIOMARINAP-US-2023-153592

PATIENT

DRUGS (3)
  1. KUVAN [Suspect]
     Active Substance: SAPROPTERIN DIHYDROCHLORIDE
     Indication: Hypergammaglobulinaemia
     Dosage: 1100 MILLIGRAM, TID
     Route: 048
     Dates: start: 202104
  2. KUVAN [Suspect]
     Active Substance: SAPROPTERIN DIHYDROCHLORIDE
     Indication: Immunodeficiency
  3. KUVAN [Suspect]
     Active Substance: SAPROPTERIN DIHYDROCHLORIDE
     Indication: Endocrine disorder

REACTIONS (4)
  - Pancreatic disorder [Unknown]
  - Gallbladder disorder [Unknown]
  - Decreased appetite [Unknown]
  - Off label use [Unknown]
